FAERS Safety Report 11655418 (Version 1)
Quarter: 2015Q4

REPORT INFORMATION
  Report Type: Spontaneous
  Country: DE (occurrence: DE)
  Receive Date: 20151023
  Receipt Date: 20151023
  Transmission Date: 20160304
  Serious: Yes (Other)
  Sender: FDA-Public Use
  Company Number: DE-ROCHE-1649872

PATIENT
  Sex: Female

DRUGS (7)
  1. ACYCLOVIR. [Concomitant]
     Active Substance: ACYCLOVIR
  2. RITUXIMAB [Suspect]
     Active Substance: RITUXIMAB
     Indication: GRANULOMATOSIS WITH POLYANGIITIS
     Dosage: 4 CYCLES
     Route: 042
     Dates: start: 20131217
  3. CYCLOPHOSPHAMID [Concomitant]
     Active Substance: CYCLOPHOSPHAMIDE
  4. PREDNISOLON [Concomitant]
     Active Substance: PREDNISOLONE
     Route: 048
  5. PIPERACILLIN [Concomitant]
     Active Substance: PIPERACILLIN
  6. TAZOBACTAM [Concomitant]
     Active Substance: TAZOBACTAM
  7. DOXYCYCLIN [Concomitant]
     Active Substance: DOXYCYCLINE

REACTIONS (1)
  - Drug intolerance [Recovered/Resolved]
